FAERS Safety Report 9504257 (Version 2)
Quarter: 2013Q3

REPORT INFORMATION
  Report Type: Spontaneous
  Country: JP (occurrence: JP)
  Receive Date: 20130906
  Receipt Date: 20130923
  Transmission Date: 20140515
  Serious: Yes (Other)
  Sender: FDA-Public Use
  Company Number: JP-GLAXOSMITHKLINE-B0920665A

PATIENT
  Age: 73 Year
  Sex: Male

DRUGS (2)
  1. AVOLVE [Suspect]
     Indication: BENIGN PROSTATIC HYPERPLASIA
     Dosage: .5MG PER DAY
     Route: 048
     Dates: start: 20101117
  2. URIEF [Suspect]
     Indication: BENIGN PROSTATIC HYPERPLASIA
     Dosage: 4MG TWICE PER DAY
     Route: 048
     Dates: start: 20121212, end: 20130307

REACTIONS (2)
  - Loss of consciousness [Recovering/Resolving]
  - Visual field defect [Recovering/Resolving]
